FAERS Safety Report 8052566-0 (Version None)
Quarter: 2012Q1

REPORT INFORMATION
  Report Type: 
  Country: None (occurrence: None)
  Receive Date: 20120118
  Receipt Date: 20120113
  Transmission Date: 20120608
  Serious: No
  Sender: FDA-Public Use
  Company Number: US-B.I. PHARMACEUTICALS,INC./RIDGEFIELD-2012-BP-00830BP

PATIENT
  Age: 73 Year
  Sex: Female

DRUGS (6)
  1. SIMVASTATIN [Concomitant]
  2. MICARDIS [Concomitant]
     Indication: HYPERTENSION
     Dates: start: 20100101
  3. FENOFIBRATE [Concomitant]
  4. PRADAXA [Suspect]
     Indication: ATRIAL FIBRILLATION
     Dosage: 150 MG
     Route: 048
     Dates: start: 20110701
  5. DILTIAZEM HCL [Concomitant]
  6. METOPROLOL TARTRATE [Concomitant]

REACTIONS (1)
  - PAIN IN EXTREMITY [None]
